FAERS Safety Report 4953905-7 (Version None)
Quarter: 2006Q1

REPORT INFORMATION
  Report Type: 
  Country: None (occurrence: None)
  Receive Date: 20060322
  Receipt Date: 20060309
  Transmission Date: 20060701
  Serious: Yes (Hospitalization)
  Sender: FDA-Public Use
  Company Number: 2006035503

PATIENT
  Age: 64 Year
  Sex: Male

DRUGS (3)
  1. LYRICA [Suspect]
     Indication: NEURALGIA
     Dosage: 150 MG (75 MG, 2 IN 1 D), ORAL
     Route: 048
  2. CITALOPRAM (CITALOPRAM) [Concomitant]
  3. ALPRAZOLAM [Concomitant]

REACTIONS (3)
  - ANGINA PECTORIS [None]
  - ARRHYTHMIA [None]
  - PALPITATIONS [None]
